FAERS Safety Report 7294089-2 (Version None)
Quarter: 2011Q1

REPORT INFORMATION
  Report Type: 
  Country: None (occurrence: None)
  Receive Date: 20110203
  Receipt Date: 20110121
  Transmission Date: 20110831
  Serious: Yes (Hospitalization)
  Sender: FDA-Public Use
  Company Number: DSJ-2011-01294

PATIENT
  Age: 78 Year
  Sex: Female

DRUGS (4)
  1. METFORMIN/VILDAGLIPTIN [Concomitant]
  2. GLIMEPIRIDE (GLIMEPIRIDE) (GLIMEPIRIDE) [Concomitant]
  3. BENICAR HCT [Suspect]
     Indication: HYPERTENSION
     Dosage: 40/25 MG (1 IN 1 D), PER ORAL
     Route: 048
     Dates: start: 20100101
  4. CLONIDINE [Concomitant]

REACTIONS (1)
  - DIVERTICULITIS [None]
